FAERS Safety Report 23678938 (Version 1)
Quarter: 2024Q1

REPORT INFORMATION
  Report Type: Spontaneous
  Country: CN (occurrence: CN)
  Receive Date: 20240327
  Receipt Date: 20240327
  Transmission Date: 20240409
  Serious: Yes (Life-Threatening, Other)
  Sender: FDA-Public Use
  Company Number: CN-PFIZER INC-PV202400040218

PATIENT
  Age: 27 Year
  Sex: Male
  Weight: 60 kg

DRUGS (3)
  1. CYTARABINE [Suspect]
     Active Substance: CYTARABINE
     Indication: Acute leukaemia
     Dosage: 3 G, 2X/DAY (2 G/M2 (ACTUAL DOSE 3.0G) Q12H D1, D3, D5 )
  2. CYTARABINE [Suspect]
     Active Substance: CYTARABINE
     Dosage: 4.5 G, 2X/DAY (3 G/M2 (ACTUAL DOSE 4.5 G) Q12H D1, D3, D5)
  3. CYTARABINE [Suspect]
     Active Substance: CYTARABINE
     Dosage: 4.5 G, 2X/DAY (3G/M2 (ACTUAL DOSE 4.5 G) Q12H D1, D3, D5 )
     Route: 041
     Dates: start: 20240222, end: 20240229

REACTIONS (1)
  - Myelosuppression [Recovering/Resolving]

NARRATIVE: CASE EVENT DATE: 20240302
